FAERS Safety Report 9655556 (Version 1)
Quarter: 2013Q4

REPORT INFORMATION
  Report Type: Report from Study
  Country: US (occurrence: US)
  Receive Date: 20131029
  Receipt Date: 20131029
  Transmission Date: 20140711
  Serious: Yes (Death)
  Sender: FDA-Public Use
  Company Number: US-ROCHE-1296752

PATIENT
  Age: 55 Year
  Sex: Female

DRUGS (1)
  1. AVASTIN [Suspect]
     Indication: BRAIN NEOPLASM MALIGNANT
     Route: 042
     Dates: start: 201301, end: 20130131

REACTIONS (1)
  - Death [Fatal]
